FAERS Safety Report 25659520 (Version 2)
Quarter: 2025Q4

REPORT INFORMATION
  Report Type: Report from Study
  Country: JP (occurrence: JP)
  Receive Date: 20250808
  Receipt Date: 20251007
  Transmission Date: 20260117
  Serious: Yes (Other)
  Sender: ASTELLAS
  Company Number: JP-ASTELLAS-2025-AER-040556

PATIENT
  Age: 74 Year
  Sex: Female

DRUGS (13)
  1. VYLOY [Suspect]
     Active Substance: ZOLBETUXIMAB-CLZB
     Indication: Gastric cancer
     Route: 065
     Dates: start: 20250521
  2. VYLOY [Suspect]
     Active Substance: ZOLBETUXIMAB-CLZB
     Route: 065
     Dates: start: 20250610
  3. TS-1 [Concomitant]
     Active Substance: GIMERACIL\OTERACIL POTASSIUM\TEGAFUR
     Indication: Gastric cancer
     Route: 065
     Dates: start: 20250521
  4. TS-1 [Concomitant]
     Active Substance: GIMERACIL\OTERACIL POTASSIUM\TEGAFUR
     Route: 065
     Dates: start: 20250610
  5. TS-1 [Concomitant]
     Active Substance: GIMERACIL\OTERACIL POTASSIUM\TEGAFUR
     Route: 065
     Dates: start: 20250630
  6. TS-1 [Concomitant]
     Active Substance: GIMERACIL\OTERACIL POTASSIUM\TEGAFUR
     Route: 065
     Dates: start: 2025
  7. TS-1 [Concomitant]
     Active Substance: GIMERACIL\OTERACIL POTASSIUM\TEGAFUR
     Route: 065
     Dates: start: 202506
  8. OXALIPLATIN [Concomitant]
     Active Substance: OXALIPLATIN
     Indication: Gastric cancer
     Route: 065
     Dates: start: 20250521
  9. OXALIPLATIN [Concomitant]
     Active Substance: OXALIPLATIN
     Route: 065
     Dates: start: 20250610
  10. OXALIPLATIN [Concomitant]
     Active Substance: OXALIPLATIN
     Route: 065
     Dates: start: 20250630
  11. OXALIPLATIN [Concomitant]
     Active Substance: OXALIPLATIN
     Route: 065
     Dates: start: 202506
  12. DEXAMETHASONE [Concomitant]
     Active Substance: DEXAMETHASONE
     Indication: Product used for unknown indication
     Route: 065
  13. OLANZAPINE [Concomitant]
     Active Substance: OLANZAPINE
     Indication: Product used for unknown indication
     Route: 065

REACTIONS (5)
  - Renal impairment [Unknown]
  - Decreased appetite [Unknown]
  - Hypoalbuminaemia [Recovering/Resolving]
  - Oedema peripheral [Unknown]
  - Decreased appetite [Unknown]

NARRATIVE: CASE EVENT DATE: 20250101
